FAERS Safety Report 8230727-5 (Version None)
Quarter: 2012Q1

REPORT INFORMATION
  Report Type: 
  Country: None (occurrence: None)
  Receive Date: 20120323
  Receipt Date: 20120313
  Transmission Date: 20120608
  Serious: Yes (Hospitalization, Other)
  Sender: FDA-Public Use
  Company Number: US-JNJFOC-20120308214

PATIENT

DRUGS (10)
  1. ETOPOSIDE [Suspect]
     Indication: HODGKIN'S DISEASE
     Dosage: INTRAVENOUS PIGGY BACK AT 3 DOSES STARTING ON DAY 1; ON 17-21 DAY SCHEDULE
     Route: 042
  2. PEGFILGRASTIM [Concomitant]
     Indication: PALLIATIVE CARE
     Route: 065
  3. CARBOPLATIN [Suspect]
     Indication: HODGKIN'S DISEASE
     Dosage: GIVEN AS INTRAVENOUS PIGGY BACK, 1 TIME ON DAY 3, AREA UNDER CURVE 5 (MAXIMUM DOSE 800 MG).
     Route: 042
  4. IFOSFAMIDE [Suspect]
     Indication: HODGKIN'S DISEASE
     Route: 042
  5. MESNA [Suspect]
     Indication: HODGKIN'S DISEASE
     Route: 042
  6. FILGRASTIM [Concomitant]
     Indication: HAEMATOPOIETIC STEM CELL MOBILISATION
     Route: 065
  7. DOXORUBICIN HCL [Suspect]
     Indication: HODGKIN'S DISEASE
     Route: 042
  8. VINORELBINE [Suspect]
     Indication: HODGKIN'S DISEASE
     Route: 065
  9. GEMCITABINE [Suspect]
     Indication: HODGKIN'S DISEASE
     Route: 065
  10. IFOSFAMIDE [Suspect]
     Route: 042

REACTIONS (1)
  - RENAL FAILURE ACUTE [None]
